FAERS Safety Report 6473980-0 (Version None)
Quarter: 2009Q4

REPORT INFORMATION
  Report Type: 
  Country: None (occurrence: None)
  Receive Date: 20091204
  Receipt Date: 20091125
  Transmission Date: 20100525
  Serious: Yes (Other)
  Sender: FDA-Public Use
  Company Number: AU-ASTRAZENECA-2009SE29050

PATIENT
  Age: 73 Year
  Sex: Male

DRUGS (5)
  1. CRESTOR TABLET [Suspect]
     Indication: METABOLIC DISORDER
     Route: 048
     Dates: start: 20071115, end: 20080215
  2. RAMACE [Concomitant]
     Dosage: 1.3 MG
     Route: 048
  3. SOTALOL HCL [Concomitant]
     Dosage: 160 MG
     Route: 048
  4. WARFARIN SODIUM [Concomitant]
     Indication: ARRHYTHMIA
     Dosage: 5.3 MG
     Route: 048
  5. WARFARIN SODIUM [Concomitant]
     Route: 048

REACTIONS (3)
  - CEREBELLAR INFARCTION [None]
  - INTERNATIONAL NORMALISED RATIO DECREASED [None]
  - VERTIGO [None]
